FAERS Safety Report 7338778-X (Version None)
Quarter: 2011Q1

REPORT INFORMATION
  Report Type: 
  Country: None (occurrence: None)
  Receive Date: 20110308
  Receipt Date: 20110223
  Transmission Date: 20110831
  Serious: Yes (Other)
  Sender: FDA-Public Use
  Company Number: PHHY2010JP63697

PATIENT
  Sex: Female

DRUGS (3)
  1. NEORAL [Suspect]
     Dosage: 100 MG/DAY
     Dates: start: 20100901
  2. NEORAL [Suspect]
     Indication: DERMATITIS ATOPIC
     Dosage: 100 MG
     Route: 048
     Dates: start: 20100531, end: 20100908
  3. NEORAL [Suspect]
     Dosage: 100 MG/DAY
     Route: 048
     Dates: start: 20100801

REACTIONS (6)
  - LOSS OF CONSCIOUSNESS [None]
  - SWELLING FACE [None]
  - COUGH [None]
  - FALL [None]
  - HAEMORRHAGE [None]
  - FACE INJURY [None]
